FAERS Safety Report 5595016-6 (Version None)
Quarter: 2008Q1

REPORT INFORMATION
  Report Type: 
  Country: None (occurrence: None)
  Receive Date: 20080117
  Receipt Date: 20080103
  Transmission Date: 20080703
  Serious: Yes (Hospitalization, Other)
  Sender: FDA-Public Use
  Company Number: TR-BAUSCH-2008BL000041

PATIENT
  Age: 62 Year
  Sex: Female

DRUGS (3)
  1. DESMOPRESSIN ACETATE [Suspect]
     Indication: ELECTROLYTE IMBALANCE
  2. DEXAMETHASONE TAB [Concomitant]
     Indication: HYPOPITUITARISM
  3. LEVOTHYROXINE SODIUM [Concomitant]
     Indication: HYPOPITUITARISM

REACTIONS (1)
  - HYPERTENSIVE ENCEPHALOPATHY [None]
